FAERS Safety Report 6936567-9 (Version None)
Quarter: 2010Q3

REPORT INFORMATION
  Report Type: 
  Country: None (occurrence: None)
  Receive Date: 20100823
  Receipt Date: 20100808
  Transmission Date: 20110219
  Serious: Yes (Hospitalization)
  Sender: FDA-Public Use
  Company Number: FR-ROCHE-717626

PATIENT
  Sex: Male
  Weight: 72 kg

DRUGS (13)
  1. MYCOPHENOLATE MOFETIL [Suspect]
     Indication: PROPHYLAXIS AGAINST TRANSPLANT REJECTION
     Route: 048
     Dates: start: 20100505, end: 20100624
  2. MYCOPHENOLATE MOFETIL [Suspect]
     Dosage: REDUCED
     Route: 048
     Dates: start: 20100625
  3. PROGRAF [Suspect]
     Indication: PROPHYLAXIS AGAINST TRANSPLANT REJECTION
     Route: 048
     Dates: start: 20100529, end: 20100622
  4. SOLUPRED [Suspect]
     Indication: PROPHYLAXIS AGAINST TRANSPLANT REJECTION
     Route: 048
     Dates: start: 20100601
  5. SOLUPRED [Suspect]
     Dosage: REDUCED
     Route: 048
     Dates: start: 20100625
  6. NEXIUM [Concomitant]
     Dates: start: 20100601
  7. BACTRIM [Concomitant]
     Dosage: DRUG: BACTRIM NOURISSON, TDD: 1 CM
     Dates: start: 20100511
  8. SPECIAFOLDINE [Concomitant]
     Dates: start: 20100511, end: 20100620
  9. KARDEGIC [Concomitant]
     Dates: start: 20100527, end: 20100620
  10. AMOXICILLIN [Concomitant]
     Dates: start: 20100530, end: 20100620
  11. NEORECORMON [Concomitant]
     Dates: start: 20100602, end: 20100610
  12. LEXOMIL [Concomitant]
     Dosage: TDD: 1
     Dates: start: 20100603, end: 20100620
  13. TARDYFERON B9 [Concomitant]
     Dosage: TDD: 3
     Dates: start: 20100603, end: 20100620

REACTIONS (2)
  - GRAND MAL CONVULSION [None]
  - REVERSIBLE POSTERIOR LEUKOENCEPHALOPATHY SYNDROME [None]
